FAERS Safety Report 10087308 (Version 2)
Quarter: 2014Q2

REPORT INFORMATION
  Report Type: Spontaneous
  Country: NO (occurrence: NO)
  Receive Date: 20140418
  Receipt Date: 20140428
  Transmission Date: 20141212
  Serious: Yes (Life-Threatening, Hospitalization)
  Sender: FDA-Public Use
  Company Number: NO-B.I. PHARMACEUTICALS,INC./RIDGEFIELD-2014-BI-17468NO

PATIENT
  Age: 68 Year
  Sex: Female

DRUGS (6)
  1. PRADAXA [Suspect]
     Indication: ATRIAL FIBRILLATION
     Dosage: 220 MG
     Route: 048
     Dates: end: 20140401
  2. SELO-ZOK/METOPROLOL [Concomitant]
     Indication: ATRIAL FIBRILLATION
     Dosage: 200 MG
     Route: 048
  3. TRIOBE/CYANOCOBALAMIN, PYRIDOXINE (VIT B6), FOLIC ACID [Concomitant]
     Dosage: 1 ANZ
     Route: 048
  4. ATACAND/CANDESARTAN [Concomitant]
     Indication: HYPERTENSION
     Dosage: 8 MG
     Route: 048
  5. ALENDRONAT/ALENDRONIC ACID [Concomitant]
     Indication: OSTEOPOROSIS
     Dosage: 10 MG
     Route: 048
  6. CALCIGRAN FORTE/CALCIUM, COMBINATIONS WITH VITAMIN D AND/OR OTHER DRUG [Concomitant]
     Indication: OSTEOPOROSIS
     Dosage: 1 ANZ
     Route: 048

REACTIONS (4)
  - Facial paresis [Unknown]
  - Aphasia [Unknown]
  - Cerebral haemorrhage [Unknown]
  - Headache [Unknown]
